FAERS Safety Report 4975048-9 (Version None)
Quarter: 2006Q2

REPORT INFORMATION
  Report Type: 
  Country: None (occurrence: None)
  Receive Date: 20060418
  Receipt Date: 20050222
  Transmission Date: 20061013
  Serious: Yes (Hospitalization)
  Sender: FDA-Public Use
  Company Number: US-BRISTOL-MYERS SQUIBB COMPANY-12871026

PATIENT
  Age: 67 Year
  Sex: Female

DRUGS (4)
  1. ERBITUX [Suspect]
     Indication: COLORECTAL CANCER
     Dosage: START DATE 04-OCT-04, THERAPY TEMPORARILY STOPPED, RESTARTED.
     Route: 042
     Dates: start: 20050207, end: 20050207
  2. OXALIPLATIN [Suspect]
     Indication: COLORECTAL CANCER
     Dosage: THERAPY START DATE 04-OCT-04, TEMPORARILY STOPPED, PERMANENTLY STOPPED.
     Route: 042
     Dates: start: 20050207, end: 20050207
  3. FLUOROURACIL [Suspect]
     Indication: COLORECTAL CANCER
     Dosage: START DATE 04-OCT-04, TEMPORARILY STOPPED, PERMANENTLY STOPPED.
     Route: 042
     Dates: start: 20050207, end: 20050207
  4. LEUCOVORIN [Suspect]
     Indication: COLORECTAL CANCER
     Dosage: START DATE 04-OCT-04, TEMPORARILY STOPPED.
     Route: 042
     Dates: start: 20050207, end: 20050207

REACTIONS (3)
  - DEHYDRATION [None]
  - DIARRHOEA [None]
  - FUNGAEMIA [None]
